FAERS Safety Report 8903005 (Version 1)
Quarter: 2012Q4

REPORT INFORMATION
  Report Type: 
  Country: DE (occurrence: DE)
  Receive Date: 20121112
  Receipt Date: 20121112
  Transmission Date: 20130627
  Serious: Yes (Hospitalization)
  Sender: FDA-Public Use
  Company Number: DE-ELI_LILLY_AND_COMPANY-DE201210009422

PATIENT
  Sex: Female

DRUGS (9)
  1. CYMBALTA [Suspect]
     Indication: FIBROMYALGIA
     Dosage: 30 mg, qd
     Route: 048
     Dates: start: 20120921, end: 20120927
  2. CYMBALTA [Suspect]
     Dosage: 30 mg, qd
     Dates: start: 20121008
  3. AMINEURIN [Concomitant]
  4. DIAZEPAM [Concomitant]
  5. L-THYROXIN [Concomitant]
  6. BETAHISTIN                         /00141802/ [Concomitant]
  7. METOPROLOL SUCCINATE [Concomitant]
  8. CALCIUM [Concomitant]
  9. VALERIAN EXTRACT [Concomitant]

REACTIONS (6)
  - Brain stem syndrome [Not Recovered/Not Resolved]
  - Panic attack [Not Recovered/Not Resolved]
  - Anxiety [Recovered/Resolved]
  - Restlessness [Recovered/Resolved]
  - Lethargy [Not Recovered/Not Resolved]
  - Fatigue [Not Recovered/Not Resolved]
